FAERS Safety Report 7973377-8 (Version None)
Quarter: 2011Q4

REPORT INFORMATION
  Report Type: 
  Country: None (occurrence: None)
  Receive Date: 20111213
  Receipt Date: 20110817
  Transmission Date: 20120403
  Serious: Yes (Other)
  Sender: FDA-Public Use
  Company Number: US-AMGEN-USASP2011034074

PATIENT
  Sex: Female

DRUGS (2)
  1. IRON [Suspect]
  2. ARANESP [Suspect]
     Indication: RENAL FAILURE CHRONIC
     Dosage: 60 MUG, Q2WK
     Dates: start: 20070101

REACTIONS (1)
  - HAEMOGLOBIN DECREASED [None]
